FAERS Safety Report 15547207 (Version 1)
Quarter: 2018Q4

REPORT INFORMATION
  Report Type: Spontaneous
  Country: DE (occurrence: DE)
  Receive Date: 20181024
  Receipt Date: 20181024
  Transmission Date: 20190205
  Serious: Yes (Hospitalization, Other)
  Sender: FDA-Public Use
  Company Number: DE-ELI_LILLY_AND_COMPANY-DE201810008673

PATIENT
  Age: 60 Year
  Sex: Male

DRUGS (3)
  1. ABASAGLAR [Suspect]
     Active Substance: INSULIN GLARGINE
     Indication: DIABETES MELLITUS
     Dosage: 26 U, DAILY
     Route: 058
     Dates: start: 201806, end: 201810
  2. FORXIGA [Concomitant]
     Active Substance: DAPAGLIFLOZIN
     Indication: PRODUCT USED FOR UNKNOWN INDICATION
  3. METFORMIN [Concomitant]
     Active Substance: METFORMIN HYDROCHLORIDE
     Indication: PRODUCT USED FOR UNKNOWN INDICATION
     Dosage: 1000 DF, BID

REACTIONS (3)
  - Lactic acidosis [Unknown]
  - Hypoglycaemia [Not Recovered/Not Resolved]
  - Ketoacidosis [Unknown]

NARRATIVE: CASE EVENT DATE: 2018
